FAERS Safety Report 7255523-7 (Version None)
Quarter: 2011Q1

REPORT INFORMATION
  Report Type: 
  Country: None (occurrence: None)
  Receive Date: 20110129
  Receipt Date: 20100318
  Transmission Date: 20110831
  Serious: No
  Sender: FDA-Public Use
  Company Number: US-ABBOTT-10P-163-0633030-00

PATIENT
  Age: 17 Year
  Sex: Male

DRUGS (2)
  1. ADALIMUMAB [Suspect]
  2. ADALIMUMAB [Suspect]
     Indication: CROHN'S DISEASE

REACTIONS (1)
  - DRUG ERUPTION [None]
